FAERS Safety Report 6213456-9 (Version None)
Quarter: 2009Q2

REPORT INFORMATION
  Report Type: 
  Country: None (occurrence: None)
  Receive Date: 20090601
  Receipt Date: 20090305
  Transmission Date: 20091009
  Serious: Yes (Death)
  Sender: FDA-Public Use
  Company Number: 8046853

PATIENT
  Sex: Male
  Weight: 45 kg

DRUGS (4)
  1. KEPPRA [Suspect]
     Indication: EPILEPSY
  2. MERONEM /01250501/ [Concomitant]
  3. ORFIRIL /00228501/ [Concomitant]
  4. LAMICTAL [Concomitant]

REACTIONS (3)
  - DRUG EFFECT DECREASED [None]
  - OXYGEN SATURATION DECREASED [None]
  - STATUS EPILEPTICUS [None]
